FAERS Safety Report 5836789-4 (Version None)
Quarter: 2008Q3

REPORT INFORMATION
  Report Type: 
  Country: None (occurrence: None)
  Receive Date: 20080807
  Receipt Date: 20080801
  Transmission Date: 20090109
  Serious: Yes (Life-Threatening, Hospitalization)
  Sender: FDA-Public Use
  Company Number: FR-AVENTIS-200812481FR

PATIENT
  Age: 67 Year
  Sex: Male

DRUGS (12)
  1. LANTUS [Suspect]
     Route: 058
  2. METFORMIN HCL [Suspect]
     Route: 048
     Dates: end: 20080110
  3. GLIMEPIRIDE [Suspect]
     Route: 048
  4. COAPROVEL [Concomitant]
  5. FUROSEMIDE [Concomitant]
  6. LEVOTHYROXINE SODIUM [Concomitant]
  7. CEFTRIAXONE [Concomitant]
  8. CORDARONE [Concomitant]
  9. INIPOMP                            /01263201/ [Concomitant]
  10. ISOPTIN [Concomitant]
  11. TIORFAN [Concomitant]
  12. MORPHINE [Concomitant]

REACTIONS (2)
  - HYPOGLYCAEMIC COMA [None]
  - LACTIC ACIDOSIS [None]
